FAERS Safety Report 5320808-8 (Version None)
Quarter: 2007Q2

REPORT INFORMATION
  Report Type: 
  Country: None (occurrence: None)
  Receive Date: 20070502
  Receipt Date: 20070416
  Transmission Date: 20071010
  Serious: Yes (Other)
  Sender: FDA-Public Use
  Company Number: 1-14695357

PATIENT
  Age: 19 Year
  Sex: Female
  Weight: 59.8748 kg

DRUGS (5)
  1. SOLODYN [Suspect]
     Indication: ACNE
     Dosage: 1 TABLET DAILY ORALLY
     Route: 048
     Dates: start: 20061213, end: 20070301
  2. OLUX (CLOBETASOL) [Concomitant]
  3. DUAC (CLINDAMYCIN/BENZOYL PEROXIDE) GEL [Concomitant]
  4. PROGRAF [Concomitant]
  5. DIFFERIN [Concomitant]

REACTIONS (6)
  - DIZZINESS [None]
  - FEELING ABNORMAL [None]
  - HYDROCEPHALUS [None]
  - SINUSITIS [None]
  - STRESS [None]
  - VASCULAR HEADACHE [None]
